FAERS Safety Report 10363550 (Version 3)
Quarter: 2014Q4

REPORT INFORMATION
  Report Type: Spontaneous
  Country: BR (occurrence: BR)
  Receive Date: 20140805
  Receipt Date: 20141031
  Transmission Date: 20150528
  Serious: Yes (Other)
  Sender: FDA-Public Use
  Company Number: PHHY2014BR095310

PATIENT
  Age: 6 Year
  Sex: Female

DRUGS (1)
  1. TEGRETOL [Suspect]
     Active Substance: CARBAMAZEPINE
     Indication: BRADYPHRENIA
     Dosage: 10 ML, QD
     Route: 048
     Dates: start: 201406, end: 20140723

REACTIONS (14)
  - Vomiting [Recovering/Resolving]
  - Nausea [Recovering/Resolving]
  - Chromaturia [Recovering/Resolving]
  - Oropharyngeal pain [Recovering/Resolving]
  - Pyrexia [Recovering/Resolving]
  - Drug reaction with eosinophilia and systemic symptoms [Unknown]
  - Urine output decreased [Recovering/Resolving]
  - Decreased appetite [Recovering/Resolving]
  - Hepatitis [Recovering/Resolving]
  - Abdominal pain [Recovering/Resolving]
  - Rash macular [Recovering/Resolving]
  - Pneumonia [Unknown]
  - Immune system disorder [Unknown]
  - Hepatomegaly [Recovering/Resolving]

NARRATIVE: CASE EVENT DATE: 20140724
